FAERS Safety Report 12216088 (Version 1)
Quarter: 2016Q1

REPORT INFORMATION
  Report Type: Spontaneous
  Country: TW (occurrence: TW)
  Receive Date: 20160329
  Receipt Date: 20160329
  Transmission Date: 20160526
  Serious: Yes (Hospitalization, Other)
  Sender: FDA-Public Use
  Company Number: TW-ALEMBIC PHARMACUETICALS LIMITED-2016SCAL000211

PATIENT
  Age: 67 Year
  Sex: Female

DRUGS (2)
  1. LITHIUM CARBONATE. [Suspect]
     Active Substance: LITHIUM CARBONATE
     Indication: BIPOLAR I DISORDER
     Dosage: 900 MG, QD, FOR 6 MONTHS
  2. QUETIAPINE [Concomitant]
     Active Substance: QUETIAPINE
     Indication: BIPOLAR I DISORDER
     Dosage: 600 MG, QD, FOR 6 MONTHS

REACTIONS (13)
  - Blood creatinine increased [Recovered/Resolved]
  - Altered state of consciousness [Unknown]
  - Delirium [Recovered/Resolved]
  - Body temperature increased [Recovered/Resolved]
  - Tremor [Unknown]
  - Dyskinesia [Recovered/Resolved]
  - Diarrhoea [Unknown]
  - Toxicity to various agents [Unknown]
  - Dysarthria [Not Recovered/Not Resolved]
  - Diffuse axonal injury [Unknown]
  - Muscular weakness [Not Recovered/Not Resolved]
  - Ataxia [Unknown]
  - Drug level increased [Recovered/Resolved]
